FAERS Safety Report 20559182 (Version 1)
Quarter: 2022Q1

REPORT INFORMATION
  Report Type: Report from Study
  Country: IN (occurrence: IN)
  Receive Date: 20220307
  Receipt Date: 20220307
  Transmission Date: 20220423
  Serious: Yes (Other)
  Sender: FDA-Public Use
  Company Number: IN-NOVARTISPH-NVSC2022IN052735

PATIENT
  Age: 58 Year
  Sex: Male

DRUGS (1)
  1. BROLUCIZUMAB [Suspect]
     Active Substance: BROLUCIZUMAB
     Indication: Choroidal neovascularisation
     Dosage: 0.05 ML, QMO (LEFT EYE)
     Route: 047
     Dates: start: 20220115

REACTIONS (2)
  - Diplopia [Recovering/Resolving]
  - Product use in unapproved indication [Unknown]
